FAERS Safety Report 14374236 (Version 2)
Quarter: 2018Q2

REPORT INFORMATION
  Report Type: Spontaneous
  Country: FR (occurrence: FR)
  Receive Date: 20180111
  Receipt Date: 20180405
  Transmission Date: 20180711
  Serious: Yes (Other)
  Sender: FDA-Public Use
  Company Number: FR-MERCK KGAA-2039887

PATIENT
  Age: 59 Year
  Sex: Female

DRUGS (2)
  1. L THYROXINE SERB [Concomitant]
     Active Substance: LEVOTHYROXINE SODIUM
     Route: 048
     Dates: start: 20170913
  2. NOVOTHYROX [Suspect]
     Active Substance: LEVOTHYROXINE SODIUM
     Indication: THYROID MASS
     Dates: start: 2017

REACTIONS (19)
  - Loss of personal independence in daily activities [None]
  - Malaise [None]
  - Vertigo [None]
  - Weight increased [None]
  - Fear [None]
  - Haematochezia [None]
  - Abdominal pain upper [None]
  - Dyspnoea [None]
  - Dizziness [None]
  - Alopecia [None]
  - Diarrhoea [None]
  - Tachycardia [None]
  - Fatigue [None]
  - Thyroid mass [None]
  - Swelling [None]
  - Pain in extremity [None]
  - Personality disorder [None]
  - Dysphagia [None]
  - Palpitations [None]

NARRATIVE: CASE EVENT DATE: 2017
